FAERS Safety Report 22063578 (Version 4)
Quarter: 2024Q1

REPORT INFORMATION
  Report Type: Other
  Country: ZA (occurrence: None)
  Receive Date: 20230306
  Receipt Date: 20240304
  Transmission Date: 20240410
  Serious: Yes (Other)
  Sender: FDA-Public Use
  Company Number: ZA-ROCHE-3296657

PATIENT
  Age: 24 Year
  Sex: Male

DRUGS (1)
  1. OCREVUS [Suspect]
     Active Substance: OCRELIZUMAB
     Indication: Multiple sclerosis
     Dosage: THEREAFTER 600MG EVERY 6 MONTHS,
     Route: 041
     Dates: start: 20210906

REACTIONS (4)
  - Optic atrophy [Unknown]
  - Magnetic resonance imaging head abnormal [Unknown]
  - Paranasal cyst [Unknown]
  - Multiple sclerosis [Unknown]
